FAERS Safety Report 16706751 (Version 1)
Quarter: 2019Q3

REPORT INFORMATION
  Report Type: Spontaneous
  Country: US (occurrence: US)
  Receive Date: 20190815
  Receipt Date: 20190815
  Transmission Date: 20191004
  Serious: No
  Sender: FDA-Public Use
  Company Number: US-RIGEL PHARMACEUTICALS, INC.-2019FOS000236

PATIENT
  Age: 34 Year
  Sex: Male
  Weight: 63.49 kg

DRUGS (2)
  1. TAVALISSE [Suspect]
     Active Substance: FOSTAMATINIB
     Indication: IMMUNE THROMBOCYTOPENIC PURPURA
     Dosage: 100 MG, BID
     Dates: start: 20190322
  2. INSULIN [Concomitant]
     Active Substance: INSULIN NOS
     Indication: PRODUCT USED FOR UNKNOWN INDICATION
     Dosage: UNK, QID

REACTIONS (3)
  - Hepatic enzyme increased [Unknown]
  - Feeling abnormal [Unknown]
  - Alanine aminotransferase increased [Unknown]

NARRATIVE: CASE EVENT DATE: 2019
